FAERS Safety Report 12280554 (Version 1)
Quarter: 2016Q2

REPORT INFORMATION
  Report Type: Spontaneous
  Country: US (occurrence: US)
  Receive Date: 20160419
  Receipt Date: 20160419
  Transmission Date: 20160815
  Serious: No
  Sender: FDA-Public Use
  Company Number: US-ALVOGEN-2015-ALVOGEN-015909

PATIENT
  Age: 56 Year
  Sex: Female
  Weight: 54.43 kg

DRUGS (5)
  1. LISINOPRIL AND HYDROCHLOROTHIAZIDE [Suspect]
     Active Substance: HYDROCHLOROTHIAZIDE\LISINOPRIL
     Indication: BLOOD PRESSURE ABNORMAL
     Route: 048
  2. FLUTICASONE [Concomitant]
     Active Substance: FLUTICASONE\FLUTICASONE PROPIONATE
     Indication: HYPERSENSITIVITY
     Route: 045
     Dates: start: 2011
  3. ATORVASTATIN CALCIUM. [Concomitant]
     Active Substance: ATORVASTATIN CALCIUM
     Indication: BLOOD CHOLESTEROL ABNORMAL
  4. PLANTAGO OVATA [Concomitant]
     Active Substance: PLANTAGO OVATA LEAF
     Indication: PRODUCT USED FOR UNKNOWN INDICATION
     Route: 048
  5. BUPROPION. [Concomitant]
     Active Substance: BUPROPION
     Indication: DEPRESSION

REACTIONS (1)
  - Gastrooesophageal reflux disease [Unknown]
